FAERS Safety Report 7352201-0 (Version None)
Quarter: 2011Q1

REPORT INFORMATION
  Report Type: 
  Country: None (occurrence: None)
  Receive Date: 20110315
  Receipt Date: 20110215
  Transmission Date: 20110831
  Serious: No
  Sender: FDA-Public Use
  Company Number: US-B.I. PHARMACEUTICALS,INC./RIDGEFIELD-2010-BP-13817BP

PATIENT
  Age: 72 Year
  Sex: Female

DRUGS (11)
  1. PRADAXA [Suspect]
     Indication: ATRIAL FIBRILLATION
  2. LASIX [Concomitant]
     Dosage: 40 MG
  3. TRICOR [Concomitant]
     Dosage: 72.5 MG
  4. VITAMIN D [Concomitant]
     Dosage: 1000 U
  5. K-DUR [Concomitant]
  6. PRADAXA [Suspect]
     Indication: CEREBROVASCULAR ACCIDENT PROPHYLAXIS
     Dosage: 300 MG
     Route: 048
     Dates: start: 20101123, end: 20110110
  7. MULTIVITAMIN [Concomitant]
  8. MULTI-VITAMIN [Concomitant]
  9. ALLOPURINOL [Concomitant]
  10. KLOR-CON [Concomitant]
  11. FISH OIL [Concomitant]
     Dosage: 4800 MG

REACTIONS (13)
  - ARTHRALGIA [None]
  - DRY MOUTH [None]
  - DRY SKIN [None]
  - ALOPECIA [None]
  - PHYSIOTHERAPY [None]
  - MUSCULOSKELETAL PAIN [None]
  - GAIT DISTURBANCE [None]
  - PAIN IN EXTREMITY [None]
  - NECK PAIN [None]
  - ARTHRITIS [None]
  - PAIN [None]
  - PARAESTHESIA [None]
  - INSOMNIA [None]
